FAERS Safety Report 8194091-2 (Version None)
Quarter: 2012Q1

REPORT INFORMATION
  Report Type: 
  Country: None (occurrence: None)
  Receive Date: 20120308
  Receipt Date: 20120302
  Transmission Date: 20120608
  Serious: Yes (Hospitalization, Other)
  Sender: FDA-Public Use
  Company Number: US-ASTRAZENECA-2012SE14838

PATIENT
  Age: 87 Year
  Sex: Female
  Weight: 68 kg

DRUGS (5)
  1. NEXIUM [Suspect]
     Indication: GASTROOESOPHAGEAL REFLUX DISEASE
     Route: 048
  2. KLOR-CON [Concomitant]
     Indication: BLOOD POTASSIUM ABNORMAL
     Dosage: MILK TABLETS 60 MG TID
     Route: 048
  3. COUMADIN [Concomitant]
     Indication: THROMBOSIS PROPHYLAXIS
  4. FEXOR XR [Concomitant]
     Indication: ANXIETY
     Route: 048
  5. DILTIAZEM HCL [Concomitant]
     Indication: HYPERTENSION
     Route: 048

REACTIONS (6)
  - HEADACHE [None]
  - INTESTINAL OBSTRUCTION [None]
  - ABDOMINAL DISTENSION [None]
  - APHAGIA [None]
  - ABDOMINAL PAIN UPPER [None]
  - OFF LABEL USE [None]
